FAERS Safety Report 8397113-9 (Version None)
Quarter: 2012Q2

REPORT INFORMATION
  Report Type: 
  Country: None (occurrence: None)
  Receive Date: 20120530
  Receipt Date: 20120521
  Transmission Date: 20120825
  Serious: Yes (Hospitalization, Other)
  Sender: FDA-Public Use
  Company Number: ES-ABBOTT-12P-144-0932085-00

PATIENT
  Age: 30 Year
  Sex: Female
  Weight: 95 kg

DRUGS (2)
  1. HUMIRA [Suspect]
     Indication: PSORIATIC ARTHROPATHY
     Dates: start: 20110301, end: 20120106
  2. HUMIRA [Suspect]
     Indication: PSORIASIS
     Route: 058
     Dates: start: 20080328, end: 20110301

REACTIONS (5)
  - LYMPHADENOPATHY [None]
  - THYMOMA MALIGNANT [None]
  - CHEST DISCOMFORT [None]
  - NON-HODGKIN'S LYMPHOMA [None]
  - FACE OEDEMA [None]
